FAERS Safety Report 6616288-2 (Version None)
Quarter: 2010Q1

REPORT INFORMATION
  Report Type: 
  Country: None (occurrence: None)
  Receive Date: 20100305
  Receipt Date: 20100224
  Transmission Date: 20100710
  Serious: Yes (Hospitalization, Disabling)
  Sender: FDA-Public Use
  Company Number: US-PFIZER INC-2010024761

PATIENT
  Sex: Female
  Weight: 76 kg

DRUGS (3)
  1. CELEBREX [Suspect]
     Dosage: 200 MG, 2X/DAY
     Dates: start: 20040301, end: 20040301
  2. BEXTRA [Suspect]
     Dosage: 10 MG, 1X/DAY
     Dates: start: 20040517, end: 20040520
  3. BEXTRA [Suspect]
     Dosage: 20 MG, 1X/DAY
     Dates: start: 20040521, end: 20040920

REACTIONS (3)
  - COGNITIVE DISORDER [None]
  - DEPRESSION [None]
  - ISCHAEMIC STROKE [None]
